FAERS Safety Report 8239944-1 (Version None)
Quarter: 2012Q1

REPORT INFORMATION
  Report Type: 
  Country: None (occurrence: None)
  Receive Date: 20120328
  Receipt Date: 20120323
  Transmission Date: 20120608
  Serious: No
  Sender: FDA-Public Use
  Company Number: US-PFIZER INC-2012076102

PATIENT
  Sex: Female
  Weight: 66 kg

DRUGS (8)
  1. VALIUM [Concomitant]
     Indication: POST-TRAUMATIC STRESS DISORDER
     Dosage: UNK
  2. PRISTIQ [Suspect]
     Indication: ANXIETY
  3. VALIUM [Concomitant]
     Indication: PAIN
  4. PRISTIQ [Suspect]
     Indication: DEPRESSION
     Dosage: 100 MG, 1X/DAY
     Route: 048
     Dates: start: 20120201
  5. METHYLFOLATE [Concomitant]
     Dosage: UNK
  6. MAXZIDE [Concomitant]
     Indication: HYPERTENSION
     Dosage: UNK
  7. VALIUM [Concomitant]
     Indication: MUSCLE TIGHTNESS
  8. SYNTHROID [Concomitant]
     Indication: HYPOTHYROIDISM
     Dosage: UNK

REACTIONS (1)
  - PHOTOSENSITIVITY REACTION [None]
